FAERS Safety Report 6793235-4 (Version None)
Quarter: 2010Q2

REPORT INFORMATION
  Report Type: 
  Country: None (occurrence: None)
  Receive Date: 20100624
  Receipt Date: 20091001
  Transmission Date: 20101027
  Serious: Yes (Other)
  Sender: FDA-Public Use
  Company Number: US-MYLANLABS-2009S1015887

PATIENT
  Age: 51 Year
  Sex: Male

DRUGS (7)
  1. CLOZAPINE [Suspect]
  2. DEPAKOTE [Concomitant]
  3. HALOPERIDOL [Concomitant]
  4. HALOPERIDOL [Concomitant]
  5. CLONAZEPAM [Concomitant]
  6. CITALOPRAM [Concomitant]
  7. LAMICTAL [Concomitant]

REACTIONS (2)
  - GRANULOCYTOPENIA [None]
  - LEUKOPENIA [None]
